FAERS Safety Report 6242498-2 (Version None)
Quarter: 2009Q2

REPORT INFORMATION
  Report Type: 
  Country: None (occurrence: None)
  Receive Date: 20090622
  Receipt Date: 20090622
  Transmission Date: 20091009
  Serious: No
  Sender: FDA-Public Use
  Company Number: None

PATIENT
  Sex: Female
  Weight: 58.9676 kg

DRUGS (1)
  1. ALENDRONATE SODIUM [Suspect]
     Indication: OSTEOPOROSIS
     Dosage: 1 PILL ONCE WEEKLY PO
     Route: 048
     Dates: start: 20090524, end: 20090609

REACTIONS (9)
  - ANOREXIA [None]
  - ARTHRALGIA [None]
  - ASTHENIA [None]
  - DISCOMFORT [None]
  - FEELING ABNORMAL [None]
  - GASTRIC DISORDER [None]
  - MIDDLE INSOMNIA [None]
  - OROPHARYNGEAL PAIN [None]
  - PAIN IN EXTREMITY [None]
